FAERS Safety Report 5018040-0 (Version None)
Quarter: 2006Q2

REPORT INFORMATION
  Report Type: 
  Country: None (occurrence: None)
  Receive Date: 20060530
  Receipt Date: 20050318
  Transmission Date: 20061013
  Serious: Yes (Life-Threatening, Hospitalization, Other)
  Sender: FDA-Public Use
  Company Number: 2005046908

PATIENT
  Sex: Male

DRUGS (5)
  1. LYRICA [Suspect]
     Indication: EPILEPSY
     Dosage: 225 MG (2 IN 1 D), ORAL
     Route: 048
     Dates: end: 20050313
  2. CLOBAZAM (CLOZABAM) [Suspect]
     Indication: EPILEPSY
     Dosage: 15 MG (10 MG, 2 IN 1 D), ORAL
     Route: 048
  3. PHENOBARBITAL TAB [Concomitant]
  4. CARBAMAZEPINE [Concomitant]
  5. PHENOBARBITAL TAB [Concomitant]

REACTIONS (5)
  - CONDITION AGGRAVATED [None]
  - EPILEPSY [None]
  - PNEUMONIA ASPIRATION [None]
  - STATUS EPILEPTICUS [None]
  - TOOTH DISORDER [None]
